FAERS Safety Report 23684212 (Version 3)
Quarter: 2024Q2

REPORT INFORMATION
  Report Type: Spontaneous
  Country: BR (occurrence: BR)
  Receive Date: 20240328
  Receipt Date: 20240422
  Transmission Date: 20240716
  Serious: Yes (Hospitalization, Other)
  Sender: FDA-Public Use
  Company Number: BR-BoehringerIngelheim-2024-BI-018220

PATIENT
  Age: 87 Year
  Sex: Female
  Weight: 80 kg

DRUGS (1)
  1. OLODATEROL HYDROCHLORIDE\TIOTROPIUM BROMIDE MONOHYDRATE [Suspect]
     Active Substance: OLODATEROL HYDROCHLORIDE\TIOTROPIUM BROMIDE MONOHYDRATE
     Indication: Asthma
     Dosage: 2 PUFFS CONSECUTIVE, SPRAY
     Route: 055

REACTIONS (5)
  - Myocardial infarction [Recovered/Resolved]
  - Pneumonia [Recovered/Resolved]
  - Coronary artery occlusion [Unknown]
  - Asthmatic crisis [Unknown]
  - Dengue fever [Recovered/Resolved]

NARRATIVE: CASE EVENT DATE: 20220601
